FAERS Safety Report 24037534 (Version 1)
Quarter: 2024Q3

REPORT INFORMATION
  Report Type: Report from Study
  Country: CA (occurrence: CA)
  Receive Date: 20240702
  Receipt Date: 20240702
  Transmission Date: 20241017
  Serious: Yes (Hospitalization, Other)
  Sender: ABBVIE
  Company Number: CA-ABBVIE-5821103

PATIENT
  Age: 78 Year
  Sex: Female

DRUGS (4)
  1. SKYRIZI [Suspect]
     Active Substance: RISANKIZUMAB-RZAA
     Indication: Crohn^s disease
     Route: 058
     Dates: start: 202406
  2. COLESEVELAM HYDROCHLORIDE [Concomitant]
     Active Substance: COLESEVELAM HYDROCHLORIDE
     Indication: Crohn^s disease
     Dosage: TIME INTERVAL: 0.33333333 DAYS
     Route: 048
  3. SKYRIZI [Suspect]
     Active Substance: RISANKIZUMAB-RZAA
     Indication: Crohn^s disease
     Route: 042
     Dates: start: 202406, end: 202406
  4. SKYRIZI [Suspect]
     Active Substance: RISANKIZUMAB-RZAA
     Indication: Crohn^s disease
     Route: 042
     Dates: start: 20230330

REACTIONS (3)
  - Spinal stenosis [Recovered/Resolved with Sequelae]
  - Viral infection [Recovered/Resolved with Sequelae]
  - Therapeutic response shortened [Unknown]

NARRATIVE: CASE EVENT DATE: 20240201
